FAERS Safety Report 19878293 (Version 3)
Quarter: 2021Q4

REPORT INFORMATION
  Report Type: Spontaneous
  Country: US (occurrence: US)
  Receive Date: 20210924
  Receipt Date: 20211130
  Transmission Date: 20220303
  Serious: No
  Sender: FDA-Public Use
  Company Number: US-GLAXOSMITHKLINE-US2021200714

PATIENT
  Age: 66 Year
  Sex: Female

DRUGS (6)
  1. TRELEGY ELLIPTA [Suspect]
     Active Substance: FLUTICASONE FUROATE\UMECLIDINIUM BROMIDE\VILANTEROL TRIFENATATE
     Indication: Chronic obstructive pulmonary disease
     Dosage: UNK, 100MCG/62.5MCG/25MCG ONE INHALATION AT NIGHT TIME
     Route: 055
     Dates: start: 20190801
  2. OMEPRAZOLE [Concomitant]
     Active Substance: OMEPRAZOLE
     Indication: Abdominal pain upper
     Dosage: 20 MG, QD (ONCE A DAY)
  3. WARFARIN [Concomitant]
     Active Substance: WARFARIN
     Indication: Blood disorder
     Dosage: 20 MG, QD (ONCE DAILY)
     Dates: start: 20160101
  4. TOPIRAMATE [Concomitant]
     Active Substance: TOPIRAMATE
     Indication: Product used for unknown indication
     Dosage: 50 MG, QD (ONCE PER DAY)
     Dates: start: 20160101
  5. ESCITALOPRAM [Concomitant]
     Active Substance: ESCITALOPRAM OXALATE
     Indication: Depression
     Dosage: 20 MG, QD (ONCE PER DAY)
     Dates: start: 20160101
  6. ALBUTEROL SULFATE [Concomitant]
     Active Substance: ALBUTEROL SULFATE
     Indication: Dyspnoea
     Dosage: 0.5MG/3MG/3ML 3 TIMES PER DAY
     Dates: start: 20210901

REACTIONS (2)
  - Dyspnoea [Not Recovered/Not Resolved]
  - Product dose omission issue [Not Recovered/Not Resolved]

NARRATIVE: CASE EVENT DATE: 20210822
